FAERS Safety Report 20430865 (Version 1)
Quarter: 2022Q1

REPORT INFORMATION
  Report Type: Report from Study
  Country: US (occurrence: US)
  Receive Date: 20220204
  Receipt Date: 20220204
  Transmission Date: 20220423
  Serious: Yes (Hospitalization)
  Sender: FDA-Public Use
  Company Number: PFIZER INC - 202100952318

PATIENT

DRUGS (4)
  1. PEGASPARGASE [Suspect]
     Active Substance: PEGASPARGASE
     Indication: B precursor type acute leukaemia
     Dosage: 3750 IU
     Route: 042
     Dates: start: 20210623, end: 20210623
  2. METHOTREXATE [Suspect]
     Active Substance: METHOTREXATE
     Indication: B precursor type acute leukaemia
     Dosage: 1544.5 MG
     Route: 042
     Dates: start: 20210518, end: 20210702
  3. TN UNSPECIFIED [Concomitant]
     Indication: B precursor type acute leukaemia
     Dosage: 1800 MG
     Route: 042
     Dates: start: 20210518, end: 20210611
  4. TN UNSPECIFIED [Concomitant]
     Indication: B precursor type acute leukaemia
     Dosage: 8 MG
     Route: 042
     Dates: start: 20210518, end: 20210702

REACTIONS (1)
  - Vomiting [Recovered/Resolved]

NARRATIVE: CASE EVENT DATE: 20210705
